FAERS Safety Report 9798327 (Version 1)
Quarter: 2014Q1

REPORT INFORMATION
  Report Type: Spontaneous
  Country: US (occurrence: None)
  Receive Date: 20140102
  Receipt Date: 20140102
  Transmission Date: 20141002
  Serious: Yes (Hospitalization)
  Sender: FDA-Public Use
  Company Number: None

PATIENT
  Age: 63 Year
  Sex: Female

DRUGS (1)
  1. CIPROFLOXACIN 400MG/200ML [Suspect]
     Indication: INFECTION
     Dosage: DURATION:  1 TIME
     Route: 042

REACTIONS (2)
  - Injection site pruritus [None]
  - Erythema [None]
